FAERS Safety Report 16762207 (Version 2)
Quarter: 2019Q3

REPORT INFORMATION
  Report Type: Spontaneous
  Country: DE (occurrence: DE)
  Receive Date: 20190831
  Receipt Date: 20190913
  Transmission Date: 20191005
  Serious: Yes (Death, Other)
  Sender: FDA-Public Use
  Company Number: DE-TEVA-2019-DE-1098724

PATIENT
  Age: 33 Year
  Sex: Female
  Weight: 70 kg

DRUGS (12)
  1. MANNITOL. [Concomitant]
     Active Substance: MANNITOL
     Indication: CSF PRESSURE
     Dosage: B. NEED, 100 ML
     Route: 040
  2. SUFENTANIL DTI [Concomitant]
     Indication: SEDATION
     Dosage: DAILY DOSE: 30 MICROGRAM(S) EVERY HOURS
     Route: 041
  3. PROPOFOL. [Suspect]
     Active Substance: PROPOFOL
     Indication: COMPUTERISED TOMOGRAM
     Route: 041
  4. NOREPINEPHRIN DTI [Concomitant]
     Indication: SUPPORTIVE CARE
     Dosage: DAILY DOSE: 0.3 MG MILLGRAM(S) EVERY HOURS
     Route: 041
  5. PROPOFOL DTI [Suspect]
     Active Substance: PROPOFOL
     Indication: SEDATION
     Dosage: 200 - 500MG/H
     Route: 041
  6. MIRENA [Concomitant]
     Active Substance: LEVONORGESTREL
     Route: 015
  7. PROPOFOL. [Suspect]
     Active Substance: PROPOFOL
     Indication: TRACHEOSTOMY
     Dosage: 150 MILLIGRAM
     Route: 041
  8. PROPOFOL. [Suspect]
     Active Substance: PROPOFOL
     Indication: SEDATION
     Dosage: 200-500MG/H
     Route: 041
  9. NIMODIPIN DTI [Concomitant]
     Indication: PROPHYLAXIS
     Dosage: MAX. 1 MG/H
     Route: 041
  10. SIMVASTATIN. [Concomitant]
     Active Substance: SIMVASTATIN
     Dosage: 20 MILLIGRAM
     Route: 048
  11. MIDAZOLAM DTI [Concomitant]
     Indication: SEDATION
     Dosage: DAILY DOSE: 30 MG MILLGRAM(S) EVERY HOURS
     Route: 041
  12. DEXAMETHASON [Concomitant]
     Active Substance: DEXAMETHASONE
     Indication: INTRACRANIAL PRESSURE INCREASED
     Dosage: IF NECESSARY, 8 MILLIGRAM
     Route: 040

REACTIONS (6)
  - Propofol infusion syndrome [Fatal]
  - Circulatory collapse [Fatal]
  - Blood creatine phosphokinase increased [Fatal]
  - Hyperkalaemia [Fatal]
  - Rhabdomyolysis [Fatal]
  - Lactic acidosis [Fatal]

NARRATIVE: CASE EVENT DATE: 201805
